FAERS Safety Report 23542247 (Version 1)
Quarter: 2024Q1

REPORT INFORMATION
  Report Type: Spontaneous
  Country: AU (occurrence: AU)
  Receive Date: 20240220
  Receipt Date: 20240220
  Transmission Date: 20240409
  Serious: Yes (Other)
  Sender: FDA-Public Use
  Company Number: AU-Merck Healthcare KGaA-2024008365

PATIENT
  Age: 58 Year
  Sex: Female

DRUGS (6)
  1. MAVENCLAD [Suspect]
     Active Substance: CLADRIBINE
     Indication: Multiple sclerosis
     Dosage: YEAR ONE MONTH ONE THERAPY.
     Dates: start: 201908
  2. MAVENCLAD [Suspect]
     Active Substance: CLADRIBINE
     Dosage: YEAR ONE MONTH TWO THERAPY.
     Dates: start: 201909
  3. MAVENCLAD [Suspect]
     Active Substance: CLADRIBINE
     Dosage: YEAR TWO MONTH ONE THERAPY.
     Dates: start: 202010
  4. MAVENCLAD [Suspect]
     Active Substance: CLADRIBINE
     Dosage: YEAR TWO MONTH TWO THERAPY.
     Dates: start: 202011
  5. MAVENCLAD [Suspect]
     Active Substance: CLADRIBINE
     Dosage: YEAR THREE MONTH ONE THERAPY.
     Dates: start: 202207
  6. MAVENCLAD [Suspect]
     Active Substance: CLADRIBINE
     Dosage: YEAR THREE MONTH TWO THERAPY.
     Dates: start: 202208

REACTIONS (1)
  - Basal cell carcinoma [Unknown]
